FAERS Safety Report 16116270 (Version 1)
Quarter: 2019Q1

REPORT INFORMATION
  Report Type: Spontaneous
  Country: CN (occurrence: CN)
  Receive Date: 20190326
  Receipt Date: 20190326
  Transmission Date: 20190418
  Serious: Yes (Other)
  Sender: FDA-Public Use
  Company Number: CN-ROCHE-2287796

PATIENT
  Age: 75 Year
  Sex: Female

DRUGS (3)
  1. ACTILYSE [Suspect]
     Active Substance: ALTEPLASE
     Indication: LACUNAR INFARCTION
     Route: 041
     Dates: start: 20190212, end: 20190212
  2. EDARAVONE [Concomitant]
     Active Substance: EDARAVONE
  3. CINEPAZIDE MALEATE [Concomitant]
     Active Substance: CINEPAZIDE MALEATE

REACTIONS (5)
  - Tachypnoea [Recovered/Resolved]
  - Hyperhidrosis [Recovered/Resolved]
  - Nausea [Recovered/Resolved]
  - Vomiting [Recovered/Resolved]
  - Intra-abdominal haemorrhage [Recovered/Resolved]

NARRATIVE: CASE EVENT DATE: 20190213
